FAERS Safety Report 6751113-0 (Version None)
Quarter: 2010Q2

REPORT INFORMATION
  Report Type: 
  Country: None (occurrence: None)
  Receive Date: 20100602
  Receipt Date: 20100519
  Transmission Date: 20101027
  Serious: Yes (Hospitalization)
  Sender: FDA-Public Use
  Company Number: FR-ASTRAZENECA-2010SE09423

PATIENT
  Age: 83 Year
  Sex: Female
  Weight: 64 kg

DRUGS (11)
  1. ATACAND [Suspect]
     Indication: HYPERTENSION
     Route: 048
     Dates: start: 20100120, end: 20100223
  2. PREVISCAN [Suspect]
     Route: 048
     Dates: start: 20100120, end: 20100301
  3. CRESTOR [Concomitant]
     Route: 048
  4. NEXIUM [Concomitant]
     Route: 048
     Dates: start: 20090501
  5. TEMERIT [Concomitant]
     Route: 048
  6. DIAMICRON [Concomitant]
     Route: 048
  7. AMLOR [Concomitant]
     Route: 048
  8. KARDEGIC [Concomitant]
     Route: 048
  9. GLUCOPHAGE [Concomitant]
     Route: 048
  10. LASIX [Concomitant]
  11. SERETIDE [Concomitant]

REACTIONS (2)
  - AGRANULOCYTOSIS [None]
  - CELLULITIS [None]
